FAERS Safety Report 7322457-9 (Version None)
Quarter: 2011Q1

REPORT INFORMATION
  Report Type: 
  Country: None (occurrence: None)
  Receive Date: 20110119
  Receipt Date: 20100820
  Transmission Date: 20110831
  Serious: Yes (Other)
  Sender: FDA-Public Use
  Company Number: A-NJ2010-33321

PATIENT
  Age: 22 Year
  Sex: Male

DRUGS (7)
  1. TADALAFIL [Concomitant]
  2. TRACLEER [Suspect]
     Indication: PULMONARY ARTERIAL HYPERTENSION
     Dosage: 125 MG, BID, ORAL, 62.5 MG, BID, ORAL, ORAL
     Route: 048
     Dates: start: 20020809, end: 20020909
  3. TRACLEER [Suspect]
     Indication: PULMONARY ARTERIAL HYPERTENSION
     Dosage: 125 MG, BID, ORAL, 62.5 MG, BID, ORAL, ORAL
     Route: 048
     Dates: start: 20020910, end: 20100104
  4. CALCIUM CHANNEL BLOCKERS [Concomitant]
  5. TRACLEER [Suspect]
  6. EXTRA STRENGTH TYLENOL [Concomitant]
  7. WARFARIN (WARFARIN) [Concomitant]

REACTIONS (5)
  - LIVER FUNCTION TEST ABNORMAL [None]
  - ASPARTATE AMINOTRANSFERASE INCREASED [None]
  - RESPIRATORY TRACT INFECTION [None]
  - ALANINE AMINOTRANSFERASE INCREASED [None]
  - BLOOD BILIRUBIN INCREASED [None]
